FAERS Safety Report 13153829 (Version 1)
Quarter: 2017Q1

REPORT INFORMATION
  Report Type: Spontaneous
  Country: GB (occurrence: GB)
  Receive Date: 20170126
  Receipt Date: 20170126
  Transmission Date: 20170428
  Serious: Yes (Other)
  Sender: FDA-Public Use
  Company Number: GB-NOVOPROD-527543

PATIENT
  Age: 69 Year
  Sex: Male
  Weight: 128 kg

DRUGS (13)
  1. VICTOZA [Suspect]
     Active Substance: LIRAGLUTIDE
     Indication: DIABETES MELLITUS
     Dosage: UNK
     Route: 065
     Dates: start: 20161130
  2. COCODAMOL [Concomitant]
     Active Substance: ACETAMINOPHEN\CODEINE PHOSPHATE
     Dosage: 2 TAB, QID  (CAN MATCH WITH LOWER STRENGTH OVER THE COUNTER (OTC)
     Dates: start: 20151110
  3. MAALOX ANTACID [Concomitant]
     Active Substance: ALUMINUM HYDROXIDE\DIMETHICONE\MAGNESIUM HYDROXIDE
     Dosage: 10-20ML  FOUR TIMES DAILY BETWEEN MEALS AND AT NIGHT
     Dates: start: 20160809
  4. QUININE [Concomitant]
     Active Substance: QUININE
     Dosage: 1 TAB, QD (AT NIGHT.)
     Dates: start: 20140307
  5. ATORVASTATIN [Concomitant]
     Active Substance: ATORVASTATIN
     Dosage: 1 TAB, QD (EACH NIGHT)
     Dates: start: 20160809
  6. RAMIPRIL. [Concomitant]
     Active Substance: RAMIPRIL
     Dosage: 1 TAB, QD  (EACH MORNING)
     Dates: start: 20160809
  7. SITAGLIPTIN [Concomitant]
     Active Substance: SITAGLIPTIN
     Dosage: 1 TAB, QD
     Dates: start: 20160809, end: 20161125
  8. TOLTERODINE TARTRATE. [Concomitant]
     Active Substance: TOLTERODINE TARTRATE
     Dosage: 1 TAB, QD
     Dates: start: 20160809
  9. DULAGLUTIDE. [Concomitant]
     Active Substance: DULAGLUTIDE
     Dosage: 1 TAB, QW
     Dates: start: 20160809, end: 20161130
  10. VOLTAROL [Concomitant]
     Active Substance: DICLOFENAC SODIUM
     Dosage: 1 TAB, TID (WHEN REQUIRED.)
     Dates: start: 20160809
  11. GLIPIZIDE. [Concomitant]
     Active Substance: GLIPIZIDE
     Dosage: 2 TAB, BID
     Dates: start: 20160809
  12. SILDENAFIL. [Concomitant]
     Active Substance: SILDENAFIL
     Dosage: HALF TO ONE TO BE TAKEN APPROXIMATELY 1 HOUR BEFORE
     Dates: start: 20160809
  13. PANTOPRAZOLE [Concomitant]
     Active Substance: PANTOPRAZOLE SODIUM
     Dosage: 1 TAB, QD
     Dates: start: 20160809

REACTIONS (2)
  - C-reactive protein increased [Unknown]
  - Abdominal pain upper [Recovering/Resolving]
